FAERS Safety Report 10762700 (Version 2)
Quarter: 2015Q2

REPORT INFORMATION
  Report Type: Spontaneous
  Country: US (occurrence: US)
  Receive Date: 20150204
  Receipt Date: 20150422
  Transmission Date: 20150821
  Serious: Yes (Hospitalization)
  Sender: FDA-Public Use
  Company Number: US-OTSUKA-US-2015-10527

PATIENT

DRUGS (1)
  1. ABILIFY MAINTENA [Suspect]
     Active Substance: ARIPIPRAZOLE
     Indication: SCHIZOPHRENIA
     Dosage: 400 MG MILLIGRAM(S), UNKNOWN
     Route: 030
     Dates: start: 2014

REACTIONS (6)
  - Cough [Unknown]
  - Delusion [Not Recovered/Not Resolved]
  - Respiratory tract infection [Unknown]
  - Pneumonia [Unknown]
  - Rib fracture [Unknown]
  - Malaise [Not Recovered/Not Resolved]
